FAERS Safety Report 8355597-6 (Version None)
Quarter: 2012Q2

REPORT INFORMATION
  Report Type: 
  Country: None (occurrence: None)
  Receive Date: 20120514
  Receipt Date: 20120504
  Transmission Date: 20120825
  Serious: Yes (Hospitalization, Other)
  Sender: FDA-Public Use
  Company Number: US-AMGEN-USASP2012028422

PATIENT
  Age: 63 Year
  Sex: Female

DRUGS (2)
  1. ENBREL [Suspect]
     Indication: RHEUMATOID ARTHRITIS
     Dosage: 25 MG, 2 TIMES/WK
     Dates: start: 19990611, end: 20030101
  2. REMICADE [Concomitant]
     Dosage: UNK

REACTIONS (11)
  - HYPERHIDROSIS [None]
  - BACK PAIN [None]
  - DEVICE DISLOCATION [None]
  - HEART RATE INCREASED [None]
  - BLOOD PRESSURE INCREASED [None]
  - GASTRIC ULCER HAEMORRHAGE [None]
  - DRUG HYPERSENSITIVITY [None]
  - DIARRHOEA [None]
  - FEELING HOT [None]
  - RHEUMATOID ARTHRITIS [None]
  - VOMITING [None]
